FAERS Safety Report 7817802-1 (Version None)
Quarter: 2011Q4

REPORT INFORMATION
  Report Type: 
  Country: None (occurrence: None)
  Receive Date: 20111017
  Receipt Date: 20111007
  Transmission Date: 20120403
  Serious: Yes (Hospitalization)
  Sender: FDA-Public Use
  Company Number: JP-JNJFOC-20110803603

PATIENT
  Age: 80 Year
  Sex: Male
  Weight: 45 kg

DRUGS (10)
  1. NATEGLINIDE [Concomitant]
     Route: 048
     Dates: start: 20090701
  2. GALANTAMINE HYDROBROMIDE [Suspect]
     Indication: DEMENTIA ALZHEIMER'S TYPE
     Route: 048
     Dates: start: 20110706
  3. ALLOPURINOL [Concomitant]
     Route: 048
     Dates: start: 20090701
  4. FAMOTIDINE [Concomitant]
     Route: 048
     Dates: start: 20090701
  5. AMLODIPINE [Concomitant]
     Route: 048
     Dates: start: 20090701
  6. DIOVAN [Concomitant]
     Route: 048
     Dates: start: 20090701
  7. BIO-THREE [Concomitant]
     Route: 048
     Dates: start: 20090701
  8. PLAVIX [Concomitant]
     Route: 048
     Dates: start: 20090701
  9. CEROCRAL [Concomitant]
     Route: 048
     Dates: start: 20090701
  10. ADALAT [Concomitant]
     Route: 048

REACTIONS (3)
  - VOMITING [None]
  - HYPERTENSION [None]
  - DIZZINESS [None]
